FAERS Safety Report 8471724-4 (Version None)
Quarter: 2012Q2

REPORT INFORMATION
  Report Type: 
  Country: None (occurrence: None)
  Receive Date: 20120627
  Receipt Date: 20120622
  Transmission Date: 20120825
  Serious: Yes (Other)
  Sender: FDA-Public Use
  Company Number: JP-GLAXOSMITHKLINE-B0810511A

PATIENT
  Age: 43 Year
  Sex: Male

DRUGS (1)
  1. FLUTICASONE FUROATE [Suspect]
     Indication: PRODUCT USED FOR UNKNOWN INDICATION
     Route: 045
     Dates: start: 20110501, end: 20110601

REACTIONS (1)
  - DRUG ERUPTION [None]
